FAERS Safety Report 4991127-4 (Version None)
Quarter: 2006Q2

REPORT INFORMATION
  Report Type: 
  Country: None (occurrence: None)
  Receive Date: 20060428
  Receipt Date: 20060410
  Transmission Date: 20061013
  Serious: Yes (Death, Hospitalization)
  Sender: FDA-Public Use
  Company Number: CA_031106423

PATIENT
  Age: 15 Year
  Sex: Male

DRUGS (2)
  1. HUMATROPE [Suspect]
     Indication: BLOOD GROWTH HORMONE
     Dosage: 2.4 MG, SUBCUTANEOUS
     Route: 058
     Dates: start: 19970904, end: 20031114
  2. SYNTHROID [Concomitant]

REACTIONS (1)
  - ANAPLASTIC ASTROCYTOMA [None]
